FAERS Safety Report 15125653 (Version 2)
Quarter: 2018Q3

REPORT INFORMATION
  Report Type: Spontaneous
  Country: NL (occurrence: NL)
  Receive Date: 20180710
  Receipt Date: 20180713
  Transmission Date: 20181010
  Serious: Yes (Hospitalization)
  Sender: FDA-Public Use
  Company Number: PHHY2018NL037676

PATIENT
  Age: 53 Year
  Sex: Male

DRUGS (3)
  1. DOCETAXEL. [Suspect]
     Active Substance: DOCETAXEL
     Indication: METASTATIC SALIVARY GLAND CANCER
     Dosage: 75 MG/M2, UNK
     Route: 065
     Dates: start: 20170315
  2. HERCEPTIN [Suspect]
     Active Substance: TRASTUZUMAB
     Indication: METASTATIC SALIVARY GLAND CANCER
     Dosage: 600 MG, UNK
     Route: 058
     Dates: start: 20170315
  3. PERJETA [Suspect]
     Active Substance: PERTUZUMAB
     Indication: METASTATIC SALIVARY GLAND CANCER
     Dosage: 420 MG, UNK
     Route: 065
     Dates: start: 20170315

REACTIONS (3)
  - Intentional product use issue [Unknown]
  - Off label use [Unknown]
  - Cardiac failure [Recovering/Resolving]

NARRATIVE: CASE EVENT DATE: 20171005
